FAERS Safety Report 17547006 (Version 13)
Quarter: 2022Q1

REPORT INFORMATION
  Report Type: Spontaneous
  Country: US (occurrence: US)
  Receive Date: 20200316
  Receipt Date: 20220311
  Transmission Date: 20220423
  Serious: No
  Sender: FDA-Public Use
  Company Number: US-PFIZER INC-2020113422

PATIENT
  Age: 73 Year
  Sex: Male
  Weight: 99.79 kg

DRUGS (2)
  1. GENOTROPIN [Suspect]
     Active Substance: SOMATROPIN
     Indication: Pituitary tumour benign
     Dosage: 0.3 MG(0.3MG INJECTION ON THE MID QUADRANT OF ABDOMEN)
     Dates: start: 20150611
  2. GENOTROPIN [Suspect]
     Active Substance: SOMATROPIN
     Indication: Hypopituitarism
     Dosage: 0.3 MG(0.3MG INJECTION ON THE MID QUADRANT OF ABDOMEN)
     Dates: start: 2018

REACTIONS (6)
  - Drug dose omission by device [Unknown]
  - Device malfunction [Unknown]
  - Device leakage [Unknown]
  - Device issue [Unknown]
  - Device breakage [Unknown]
  - Malaise [Unknown]

NARRATIVE: CASE EVENT DATE: 20200418
